FAERS Safety Report 13693249 (Version 1)
Quarter: 2017Q2

REPORT INFORMATION
  Report Type: Spontaneous
  Country: US (occurrence: US)
  Receive Date: 20170627
  Receipt Date: 20170627
  Transmission Date: 20170830
  Serious: Yes (Other)
  Sender: FDA-Public Use
  Company Number: US-ASTRAZENECA-2017SE65643

PATIENT
  Age: 27120 Day
  Sex: Female
  Weight: 63.5 kg

DRUGS (9)
  1. ARIMIDEX [Suspect]
     Active Substance: ANASTROZOLE
     Indication: PROPHYLAXIS
     Route: 048
     Dates: start: 201405
  2. PRILOSEC OTC [Suspect]
     Active Substance: OMEPRAZOLE MAGNESIUM
     Indication: GASTROOESOPHAGEAL REFLUX DISEASE
     Dosage: ONLY 5 TO 6 TIMES PER WEEK
     Route: 048
  3. VITAMIN D [Concomitant]
     Active Substance: CHOLECALCIFEROL
     Indication: PROPHYLAXIS
     Route: 048
  4. MAGNESIUM [Concomitant]
     Active Substance: MAGNESIUM
     Indication: PROPHYLAXIS
     Route: 048
  5. TUMS EX [Concomitant]
     Active Substance: CALCIUM CARBONATE
     Indication: BLOOD CALCIUM
     Route: 048
  6. ZETIA [Concomitant]
     Active Substance: EZETIMIBE
     Dates: start: 201704
  7. COQ10 [Concomitant]
     Active Substance: UBIDECARENONE
     Indication: PROPHYLAXIS
     Route: 048
     Dates: end: 201705
  8. ARIMIDEX [Suspect]
     Active Substance: ANASTROZOLE
     Indication: BREAST CANCER FEMALE
     Route: 048
     Dates: start: 201405
  9. PRILOSEC [Suspect]
     Active Substance: OMEPRAZOLE MAGNESIUM
     Indication: GASTROOESOPHAGEAL REFLUX DISEASE
     Dosage: UNKNOWN
     Route: 048

REACTIONS (11)
  - Breast cancer stage I [Unknown]
  - Pain [Unknown]
  - Laryngospasm [Unknown]
  - Joint swelling [Unknown]
  - Pain in extremity [Recovered/Resolved]
  - Drug dispensing error [Unknown]
  - Osteoarthritis [Unknown]
  - Blood cholesterol increased [Unknown]
  - Dyspepsia [Unknown]
  - Ventricular tachycardia [Unknown]
  - Myalgia [Unknown]

NARRATIVE: CASE EVENT DATE: 201404
